FAERS Safety Report 8212049-1 (Version None)
Quarter: 2012Q1

REPORT INFORMATION
  Report Type: 
  Country: None (occurrence: None)
  Receive Date: 20120315
  Receipt Date: 20120305
  Transmission Date: 20120608
  Serious: Yes (Hospitalization)
  Sender: FDA-Public Use
  Company Number: PHHY2011US05575

PATIENT
  Sex: Male
  Weight: 65 kg

DRUGS (2)
  1. EXJADE [Suspect]
     Indication: MYELOFIBROSIS
     Dosage: 1000 MG, DAILY
     Route: 048
     Dates: start: 20110121
  2. EXJADE [Suspect]
     Dosage: 1250 MG DAILY
     Route: 048
     Dates: start: 20110914

REACTIONS (3)
  - PLATELET COUNT INCREASED [None]
  - DIARRHOEA [None]
  - HEART RATE ABNORMAL [None]
